FAERS Safety Report 25518569 (Version 1)
Quarter: 2025Q3

REPORT INFORMATION
  Report Type: Spontaneous
  Country: EU (occurrence: EU)
  Receive Date: 20250704
  Receipt Date: 20250704
  Transmission Date: 20251020
  Serious: Yes (Other)
  Sender: ROCHE
  Company Number: EU-ROCHE-10000317768

PATIENT
  Age: 44 Year
  Sex: Female

DRUGS (2)
  1. VABYSMO [Suspect]
     Active Substance: FARICIMAB-SVOA
     Indication: Ocular melanoma
     Route: 050
  2. VABYSMO [Suspect]
     Active Substance: FARICIMAB-SVOA
     Route: 050

REACTIONS (3)
  - Endophthalmitis [Recovering/Resolving]
  - Vitritis [Not Recovered/Not Resolved]
  - Off label use [Unknown]
